FAERS Safety Report 12350457 (Version 2)
Quarter: 2016Q2

REPORT INFORMATION
  Report Type: Spontaneous
  Country: US (occurrence: US)
  Receive Date: 20160510
  Receipt Date: 20160524
  Transmission Date: 20160815
  Serious: No
  Sender: FDA-Public Use
  Company Number: US-PFIZER INC-2016246960

PATIENT
  Age: 2 Week
  Sex: Female
  Weight: 4 kg

DRUGS (1)
  1. ZOLOFT [Suspect]
     Active Substance: SERTRALINE HYDROCHLORIDE
     Dosage: UNK
     Route: 063

REACTIONS (2)
  - Exposure during breast feeding [Unknown]
  - Lethargy [Unknown]
